FAERS Safety Report 7544415-1 (Version None)
Quarter: 2011Q2

REPORT INFORMATION
  Report Type: 
  Country: None (occurrence: None)
  Receive Date: 20110613
  Receipt Date: 20081016
  Transmission Date: 20111010
  Serious: Yes (Death, Other)
  Sender: FDA-Public Use
  Company Number: PHHY2008JP21610

PATIENT
  Sex: Female

DRUGS (4)
  1. MOBIC [Concomitant]
     Dosage: 10 MG, UNK
     Route: 048
     Dates: start: 20070629
  2. OXINORM [Concomitant]
     Dosage: 5 MG, UNK
     Route: 048
     Dates: start: 20070629
  3. ZOLEDRONIC ACID [Suspect]
     Indication: NON-SMALL CELL LUNG CANCER
     Dosage: 4 MG, (ONLY ONCE)
     Route: 042
     Dates: start: 20070712
  4. PREDNISOLONE [Concomitant]
     Dosage: 10 MG, UNK
     Route: 048
     Dates: start: 20070629

REACTIONS (7)
  - NEOPLASM MALIGNANT [None]
  - METASTASES TO LYMPH NODES [None]
  - METASTASES TO ABDOMINAL CAVITY [None]
  - BONE PAIN [None]
  - ILEUS [None]
  - DISSEMINATED INTRAVASCULAR COAGULATION [None]
  - PYREXIA [None]
